FAERS Safety Report 4424486-1 (Version None)
Quarter: 2004Q3

REPORT INFORMATION
  Report Type: 
  Country: None (occurrence: None)
  Receive Date: 20040812
  Receipt Date: 20040802
  Transmission Date: 20050211
  Serious: Yes (Life-Threatening, Hospitalization)
  Sender: FDA-Public Use
  Company Number: GB-GLAXOSMITHKLINE-B0341273A

PATIENT
  Age: 69 Year
  Sex: Female

DRUGS (3)
  1. AMOXICILLIN [Suspect]
     Indication: PERIODONTITIS
     Dosage: 250MG UNKNOWN
     Route: 048
     Dates: start: 20040428, end: 20040429
  2. ATENOLOL [Concomitant]
     Route: 065
  3. BENDROFLUAZIDE [Concomitant]
     Route: 065

REACTIONS (8)
  - ANAPHYLACTIC SHOCK [None]
  - BLOOD PRESSURE DECREASED [None]
  - DYSPNOEA [None]
  - EYE SWELLING [None]
  - MALAISE [None]
  - SWOLLEN TONGUE [None]
  - SYNCOPE [None]
  - THROAT TIGHTNESS [None]
